FAERS Safety Report 8092280-9 (Version None)
Quarter: 2012Q1

REPORT INFORMATION
  Report Type: 
  Country: None (occurrence: None)
  Receive Date: 20120129
  Receipt Date: 20111122
  Transmission Date: 20120608
  Serious: No
  Sender: FDA-Public Use
  Company Number: US-ABBOTT-11P-163-0876941-00

PATIENT
  Age: 45 Year
  Sex: Male

DRUGS (7)
  1. HUMIRA [Suspect]
     Indication: RHEUMATOID ARTHRITIS
     Dates: start: 20111024
  2. PREDNISONE TAB [Concomitant]
     Indication: RHEUMATOID ARTHRITIS
     Dosage: DAILY
  3. METHOTREXATE [Concomitant]
     Indication: RHEUMATOID ARTHRITIS
  4. ACETAMINOPHEN [Concomitant]
     Indication: ARTHRALGIA
  5. HYDROCODONE BITARTRATE [Concomitant]
     Indication: ARTHRALGIA
  6. ACETAMINOPHEN [Concomitant]
     Indication: PAIN IN EXTREMITY
  7. HYDROCODONE BITARTRATE [Concomitant]
     Indication: PAIN IN EXTREMITY

REACTIONS (3)
  - ASTHENIA [None]
  - DRUG INEFFECTIVE [None]
  - FATIGUE [None]
